FAERS Safety Report 10507325 (Version 1)
Quarter: 2014Q4

REPORT INFORMATION
  Report Type: Spontaneous
  Country: US (occurrence: None)
  Receive Date: 20141008
  Receipt Date: 20141008
  Transmission Date: 20150528
  Serious: Yes (Hospitalization)
  Sender: FDA-Public Use
  Company Number: None

PATIENT
  Age: 3 Year
  Sex: Female
  Weight: 13 kg

DRUGS (5)
  1. CYTARABINE. [Suspect]
     Active Substance: CYTARABINE
  2. VINCRISTINE SULFATE. [Suspect]
     Active Substance: VINCRISTINE SULFATE
  3. PEG-L-ASPARAGINASE [Suspect]
     Active Substance: PEGASPARGASE
     Dosage: 1477.5 IU
  4. DEXAMETHASONE. [Suspect]
     Active Substance: DEXAMETHASONE
  5. METHOTREXATE [Suspect]
     Active Substance: METHOTREXATE

REACTIONS (18)
  - Abdominal pain upper [None]
  - Anaemia [None]
  - Thrombocytopenia [None]
  - Hypotension [None]
  - Hypovolaemia [None]
  - Feeling cold [None]
  - Diarrhoea [None]
  - Lethargy [None]
  - Constipation [None]
  - Increased appetite [None]
  - Photosensitivity reaction [None]
  - Abdominal distension [None]
  - Headache [None]
  - Fatigue [None]
  - Sepsis [None]
  - Escherichia test positive [None]
  - Culture urine positive [None]
  - Tachycardia [None]

NARRATIVE: CASE EVENT DATE: 20140930
